FAERS Safety Report 7922498-4 (Version None)
Quarter: 2011Q4

REPORT INFORMATION
  Report Type: 
  Country: None (occurrence: None)
  Receive Date: 20111117
  Receipt Date: 20110121
  Transmission Date: 20120403
  Serious: No
  Sender: FDA-Public Use
  Company Number: US-AMGEN-USASP2011004022

PATIENT
  Age: 40 Year
  Sex: Female

DRUGS (2)
  1. METHOTREXATE [Concomitant]
  2. ENBREL [Suspect]
     Indication: JUVENILE ARTHRITIS
     Dosage: UNK
     Dates: start: 20020101

REACTIONS (7)
  - PARANASAL SINUS HYPERSECRETION [None]
  - NASOPHARYNGITIS [None]
  - ARTHRITIS [None]
  - UNEVALUABLE EVENT [None]
  - PHARYNGITIS STREPTOCOCCAL [None]
  - MALAISE [None]
  - SINUSITIS [None]
